FAERS Safety Report 23547785 (Version 1)
Quarter: 2024Q1

REPORT INFORMATION
  Report Type: Report from Study
  Country: US (occurrence: US)
  Receive Date: 20240221
  Receipt Date: 20240221
  Transmission Date: 20240410
  Serious: Yes (Disabling)
  Sender: FDA-Public Use
  Company Number: US-ABBVIE-5647374

PATIENT
  Sex: Male

DRUGS (1)
  1. VENCLEXTA [Suspect]
     Active Substance: VENETOCLAX
     Indication: Chronic lymphocytic leukaemia
     Dosage: TAKE 4 TABLET(S) BY MOUTH DAILY WITH FOOD AND FULL GLASS OF WATER, ONGOING: YES?FORM STRENGTH 100MG
     Route: 048
     Dates: start: 202205

REACTIONS (1)
  - Disability [Unknown]
